FAERS Safety Report 21694754 (Version 1)
Quarter: 2022Q4

REPORT INFORMATION
  Report Type: Spontaneous
  Country: FR (occurrence: FR)
  Receive Date: 20221207
  Receipt Date: 20221207
  Transmission Date: 20230113
  Serious: Yes (Life-Threatening, Hospitalization, Other)
  Sender: FDA-Public Use
  Company Number: None

PATIENT

DRUGS (1)
  1. SUBUTEX [Suspect]
     Active Substance: BUPRENORPHINE HYDROCHLORIDE
     Indication: Product used for unknown indication
     Dosage: UNK
     Route: 013

REACTIONS (6)
  - Shock haemorrhagic [Recovered/Resolved]
  - Aneurysm ruptured [Recovered/Resolved]
  - Infective aneurysm [Recovered/Resolved]
  - Vascular pseudoaneurysm [Recovered/Resolved]
  - Product use issue [Unknown]
  - Drug dependence [Not Recovered/Not Resolved]

NARRATIVE: CASE EVENT DATE: 20210101
